FAERS Safety Report 24134605 (Version 2)
Quarter: 2024Q3

REPORT INFORMATION
  Report Type: Spontaneous
  Country: US (occurrence: US)
  Receive Date: 20240725
  Receipt Date: 20240813
  Transmission Date: 20241016
  Serious: No
  Sender: ALEXION PHARMACEUTICALS
  Company Number: US-AstraZeneca-CH-00668523A

PATIENT
  Sex: Male
  Weight: 3.628 kg

DRUGS (1)
  1. SOLIRIS [Suspect]
     Active Substance: ECULIZUMAB
     Indication: Atypical haemolytic uraemic syndrome
     Dosage: 300 MILLIGRAM
     Route: 042
     Dates: start: 20240716

REACTIONS (2)
  - Microangiopathic haemolytic anaemia [Unknown]
  - Infection [Unknown]
